FAERS Safety Report 9003067 (Version 1)
Quarter: 2013Q1

REPORT INFORMATION
  Report Type: Spontaneous
  Country: GB (occurrence: GB)
  Receive Date: 20130108
  Receipt Date: 20130108
  Transmission Date: 20140127
  Serious: Yes (Hospitalization, Other)
  Sender: FDA-Public Use
  Company Number: GB-ROCHE-721888

PATIENT
  Sex: Female
  Weight: 52.8 kg

DRUGS (1)
  1. ROACCUTANE [Suspect]
     Indication: ACNE
     Route: 048
     Dates: start: 200901, end: 200906

REACTIONS (8)
  - Depression [Not Recovered/Not Resolved]
  - Dry skin [Unknown]
  - Eczema [Recovered/Resolved]
  - Arthralgia [Recovered/Resolved]
  - Coma [Unknown]
  - Depression [Unknown]
  - Tearfulness [Unknown]
  - Arthralgia [Unknown]
